FAERS Safety Report 20705298 (Version 5)
Quarter: 2024Q2

REPORT INFORMATION
  Report Type: Spontaneous
  Country: US (occurrence: US)
  Receive Date: 20220413
  Receipt Date: 20240419
  Transmission Date: 20240716
  Serious: Yes (Hospitalization, Other)
  Sender: FDA-Public Use
  Company Number: US-PFIZER INC-202101828675

PATIENT
  Age: 74 Year
  Sex: Female

DRUGS (8)
  1. IBRANCE [Suspect]
     Active Substance: PALBOCICLIB
     Indication: Metastases to breast
     Dosage: 3 WEEKS ON, 1 WEEK OFF, ONCE DAILY ON DAYS 1-21, EVERY 28 DAYS
     Route: 048
     Dates: start: 20210814
  2. IBRANCE [Suspect]
     Active Substance: PALBOCICLIB
     Indication: Hormone receptor positive breast cancer
     Dosage: 100 MG FOR 21 DAYS
  3. IBRANCE [Suspect]
     Active Substance: PALBOCICLIB
     Indication: Breast cancer metastatic
  4. IBRANCE [Suspect]
     Active Substance: PALBOCICLIB
     Indication: Hormone receptor positive HER2 negative breast cancer
  5. FEMARA [Concomitant]
     Active Substance: LETROZOLE
     Dosage: UNK
  6. XGEVA [Concomitant]
     Active Substance: DENOSUMAB
     Dosage: UNK
  7. NITROSTAT [Concomitant]
     Active Substance: NITROGLYCERIN
     Indication: Chest pain
     Dosage: 0.4 MG, AS NEEDED (PLACE 1 TABLET UNDER THE TONGUE EVERY 5 MINUTES X 3 DOSES AS NEEDED)
     Route: 060
  8. LETROZOLE [Concomitant]
     Active Substance: LETROZOLE
     Dosage: UNK

REACTIONS (8)
  - Fatigue [Not Recovered/Not Resolved]
  - Sluggishness [Not Recovered/Not Resolved]
  - Cytopenia [Unknown]
  - Skin induration [Unknown]
  - Skin discolouration [Unknown]
  - Dyspnoea exertional [Unknown]
  - Dyspnoea [Recovering/Resolving]
  - Malaise [Unknown]

NARRATIVE: CASE EVENT DATE: 20210824
